FAERS Safety Report 7883832-7 (Version None)
Quarter: 2011Q4

REPORT INFORMATION
  Report Type: 
  Country: None (occurrence: None)
  Receive Date: 20111102
  Receipt Date: 20111020
  Transmission Date: 20120403
  Serious: Yes (Hospitalization, Other)
  Sender: FDA-Public Use
  Company Number: CA-ELI_LILLY_AND_COMPANY-CA201110005295

PATIENT
  Sex: Male

DRUGS (9)
  1. PERINDOPRIL ERBUMINE [Concomitant]
  2. ZYPREXA [Suspect]
     Indication: SCHIZOPHRENIA, PARANOID TYPE
     Dosage: 20 MG, EACH EVENING
  3. APO-HYDROXYQUINE [Concomitant]
  4. CELEXA [Concomitant]
  5. HYDROCHLOROTHIAZIDE [Concomitant]
  6. MONOCOR [Concomitant]
  7. LIPITOR [Concomitant]
  8. ZYPREXA [Suspect]
     Indication: SCHIZOPHRENIA, PARANOID TYPE
     Dosage: 20 MG, QD
  9. ALTACE [Concomitant]

REACTIONS (5)
  - LOSS OF CONSCIOUSNESS [None]
  - MYOCARDIAL INFARCTION [None]
  - DYSPHAGIA [None]
  - PANCREATITIS [None]
  - OVERDOSE [None]
